FAERS Safety Report 24737100 (Version 1)
Quarter: 2024Q4

REPORT INFORMATION
  Report Type: Spontaneous
  Country: US (occurrence: None)
  Receive Date: 20241213
  Receipt Date: 20241213
  Transmission Date: 20250115
  Serious: Yes (Other)
  Sender: Public
  Company Number: None

PATIENT
  Sex: Female

DRUGS (4)
  1. LUPRON DEPOT [Suspect]
     Active Substance: LEUPROLIDE ACETATE
     Dosage: FREQUENCY : MONTHLY;?
     Route: 030
     Dates: start: 20241120
  2. APAP/CODEINE TAB 300-30MG [Concomitant]
  3. LO-ZUMANDIMI TAB 3-0.02MG [Concomitant]
  4. ZOLPIDEM [Concomitant]
     Active Substance: ZOLPIDEM TARTRATE

REACTIONS (1)
  - Hysterectomy [None]
